FAERS Safety Report 6467145-6 (Version None)
Quarter: 2009Q4

REPORT INFORMATION
  Report Type: 
  Country: None (occurrence: None)
  Receive Date: 20091202
  Receipt Date: 20091120
  Transmission Date: 20100525
  Serious: Yes (Hospitalization)
  Sender: FDA-Public Use
  Company Number: JP-PFIZER INC-2009291805

PATIENT
  Age: 57 Year
  Sex: Male

DRUGS (12)
  1. BANAN [Suspect]
     Indication: BRONCHITIS
     Dosage: 200 MG/DAY
     Route: 048
     Dates: start: 20091002, end: 20091007
  2. CRAVIT [Suspect]
     Indication: BRONCHITIS
     Dosage: 300 MG/DAY
     Route: 048
     Dates: start: 20090928, end: 20091011
  3. DIHYDROCODEINE PHOSPHATE [Concomitant]
     Indication: ANTITUSSIVE THERAPY
     Dosage: 1.2 G, 1X/DAY
     Route: 048
     Dates: start: 20091002, end: 20091001
  4. PELEX [Concomitant]
     Indication: OROPHARYNGEAL PAIN
     Dosage: 1 G, 3X/DAY
     Route: 048
     Dates: start: 20090928, end: 20091001
  5. RESPLEN [Concomitant]
     Indication: BRONCHITIS
     Dosage: 30 MG, 3X/DAY
     Route: 048
     Dates: start: 20090928, end: 20091017
  6. ASTOMIN [Concomitant]
     Indication: BRONCHITIS
     Dosage: 0.2 G, 3X/DAY
     Route: 048
     Dates: start: 20090928, end: 20091017
  7. GLORIAMIN [Concomitant]
     Indication: GASTRITIS
     Dosage: 0.5 G, 3X/DAY
     Route: 048
     Dates: start: 20090928, end: 20091020
  8. PYDOXAL [Concomitant]
     Indication: VITAMIN B6 DEFICIENCY
     Dosage: 10 MG, 3X/DAY
     Route: 048
     Dates: start: 20090928, end: 20091020
  9. FLAVITAN [Concomitant]
     Indication: VITAMIN B6 DEFICIENCY
     Dosage: 5 MG, 3X/DAY
     Route: 048
     Dates: start: 20090928, end: 20091020
  10. SAWATENE [Concomitant]
     Indication: BRONCHITIS
     Dosage: 250 MG, 3X/DAY
     Route: 048
     Dates: start: 20091002, end: 20091007
  11. ASTHPHYLLIN [Concomitant]
     Indication: BRONCHITIS
     Dosage: 100 MG, 3X/DAY
     Route: 048
     Dates: start: 20091002, end: 20091007
  12. FLOMOX [Concomitant]
     Indication: BRONCHITIS
     Dosage: 100 MG, 3X/DAY
     Route: 048
     Dates: start: 20091013, end: 20091016

REACTIONS (1)
  - INTERSTITIAL LUNG DISEASE [None]
